FAERS Safety Report 14212253 (Version 1)
Quarter: 2017Q4

REPORT INFORMATION
  Report Type: Spontaneous
  Country: US (occurrence: US)
  Receive Date: 20171122
  Receipt Date: 20171122
  Transmission Date: 20180321
  Serious: Yes (Death, Other)
  Sender: FDA-Public Use
  Company Number: US-CELGENEUS-USA-2014115439

PATIENT

DRUGS (3)
  1. VELCADE [Suspect]
     Active Substance: BORTEZOMIB
     Indication: AMYLOIDOSIS
     Route: 065
  2. DEXAMETHASONE. [Suspect]
     Active Substance: DEXAMETHASONE
     Indication: AMYLOIDOSIS
     Route: 065
  3. POMALYST [Suspect]
     Active Substance: POMALIDOMIDE
     Indication: AMYLOIDOSIS
     Route: 048

REACTIONS (46)
  - Lung infection [Unknown]
  - Thrombocytopenia [Unknown]
  - Dizziness [Unknown]
  - Constipation [Unknown]
  - Upper respiratory tract infection [Unknown]
  - Sudden death [Fatal]
  - Muscular weakness [Unknown]
  - Hypercalcaemia [Unknown]
  - Neuropathy peripheral [Unknown]
  - Neutropenia [Unknown]
  - Decreased appetite [Unknown]
  - Hyponatraemia [Unknown]
  - Nausea [Unknown]
  - Diarrhoea [Unknown]
  - Mania [Unknown]
  - Pleural effusion [Unknown]
  - Dyspnoea [Unknown]
  - Rash [Unknown]
  - Bradycardia [Unknown]
  - Fall [Unknown]
  - Oedema [Unknown]
  - Anaemia [Unknown]
  - Neutrophil count decreased [Unknown]
  - Affect lability [Unknown]
  - Blood creatinine increased [Unknown]
  - Arthritis [Unknown]
  - Fatigue [Unknown]
  - Urinary tract infection [Unknown]
  - Pyrexia [Unknown]
  - Syncope [Unknown]
  - Phlebitis [Unknown]
  - Tinnitus [Unknown]
  - Headache [Unknown]
  - Pain in extremity [Unknown]
  - Hypokalaemia [Unknown]
  - Lymphopenia [Unknown]
  - Myalgia [Unknown]
  - Hypoxia [Unknown]
  - Mood altered [Unknown]
  - Cough [Unknown]
  - Death [Fatal]
  - Autonomic neuropathy [Unknown]
  - Atrial tachycardia [Unknown]
  - Hypertension [Unknown]
  - Cardiac failure [Unknown]
  - Depression [Unknown]
